FAERS Safety Report 7565956-7 (Version None)
Quarter: 2011Q2

REPORT INFORMATION
  Report Type: 
  Country: None (occurrence: None)
  Receive Date: 20110623
  Receipt Date: 20110613
  Transmission Date: 20111010
  Serious: Yes (Hospitalization, Other)
  Sender: FDA-Public Use
  Company Number: US-MYLANLABS-2011S1010013

PATIENT
  Age: 61 Year
  Sex: Male
  Weight: 86.18 kg

DRUGS (10)
  1. AMNESTEEM [Suspect]
     Indication: ACNE
     Dates: end: 20110101
  2. NSAID'S [Suspect]
  3. HYDROCHLOROTHIAZIDE [Concomitant]
     Route: 048
     Dates: start: 20090206, end: 20110417
  4. ROSUVASTATIN [Concomitant]
     Dates: start: 20090206
  5. TRAMADOL HCL [Concomitant]
     Dates: start: 20101026
  6. AMNESTEEM [Suspect]
     Indication: HIDRADENITIS
     Dates: end: 20110101
  7. METOPROLOL TARTRATE [Concomitant]
     Route: 048
     Dates: start: 20090507
  8. IPRATROPIUM BROMIDE [Concomitant]
     Dates: start: 20080110
  9. CLINDAMYCIN [Concomitant]
     Route: 061
     Dates: start: 20090921
  10. LISINOPRIL [Concomitant]
     Route: 048
     Dates: start: 20080410, end: 20110417

REACTIONS (1)
  - RENAL FAILURE ACUTE [None]
